FAERS Safety Report 13781640 (Version 4)
Quarter: 2017Q4

REPORT INFORMATION
  Report Type: Report from Study
  Country: US (occurrence: US)
  Receive Date: 20170724
  Receipt Date: 20171024
  Transmission Date: 20180320
  Serious: Yes (Death, Hospitalization, Other)
  Sender: FDA-Public Use
  Company Number: US-GILEAD-2017-0284367

PATIENT
  Age: 59 Year
  Sex: Male

DRUGS (1)
  1. AMBRISENTAN [Suspect]
     Active Substance: AMBRISENTAN
     Indication: PULMONARY ARTERIAL HYPERTENSION
     Dosage: 5 MG, BID
     Route: 065
     Dates: start: 20110310, end: 20170928

REACTIONS (6)
  - Pulmonary thrombosis [Unknown]
  - Dyspnoea [Recovered/Resolved]
  - Unevaluable event [Recovered/Resolved]
  - Lung neoplasm malignant [Fatal]
  - Pneumonia [Unknown]
  - Off label use [Recovered/Resolved]

NARRATIVE: CASE EVENT DATE: 20170831
